FAERS Safety Report 19292395 (Version 1)
Quarter: 2021Q2

REPORT INFORMATION
  Report Type: Spontaneous
  Country: US (occurrence: US)
  Receive Date: 20210524
  Receipt Date: 20210524
  Transmission Date: 20210717
  Serious: Yes (Other)
  Sender: FDA-Public Use
  Company Number: US-B.I. PHARMACEUTICALS,INC./RIDGEFIELD-2021-BI-104468

PATIENT
  Age: 61 Year
  Sex: Female

DRUGS (2)
  1. MICARDIS [Suspect]
     Active Substance: TELMISARTAN
     Indication: HYPERTENSION
     Dosage: 80MG
     Dates: start: 2005, end: 2013
  2. MICARDIS [Suspect]
     Active Substance: TELMISARTAN
     Dosage: 40MG BID
     Dates: start: 2013

REACTIONS (3)
  - Hypotension [Recovered/Resolved]
  - Myocardial infarction [Recovered/Resolved]
  - Blood pressure increased [Recovered/Resolved]

NARRATIVE: CASE EVENT DATE: 2013
